FAERS Safety Report 6253393-7 (Version None)
Quarter: 2009Q2

REPORT INFORMATION
  Report Type: 
  Country: None (occurrence: None)
  Receive Date: 20090626
  Receipt Date: 20080527
  Transmission Date: 20091009
  Serious: Yes (Hospitalization)
  Sender: FDA-Public Use
  Company Number: 566873

PATIENT
  Age: 63 Year
  Sex: Female
  Weight: 68 kg

DRUGS (7)
  1. XELODA [Suspect]
     Indication: BREAST CANCER METASTATIC
     Dosage: ORAL
     Route: 048
     Dates: start: 20070901, end: 20090101
  2. HEPARIN [Suspect]
     Indication: ANTICOAGULANT THERAPY
     Dates: start: 20080101
  3. ANTICOAGULANTS NOS (ANTICOAGULANT NOS) [Suspect]
     Indication: ANTICOAGULANT THERAPY
  4. LOVENOX [Concomitant]
  5. ARMOUR THYROID (LEVOTHYROXINE/LIOTHYRONINE) [Concomitant]
  6. RESTASIS (CYCLOSPORINE) [Concomitant]
  7. FAMVIR [Concomitant]

REACTIONS (4)
  - DEEP VEIN THROMBOSIS [None]
  - LIVER FUNCTION TEST ABNORMAL [None]
  - PALMAR-PLANTAR ERYTHRODYSAESTHESIA SYNDROME [None]
  - PULMONARY EMBOLISM [None]
